FAERS Safety Report 22052175 (Version 1)
Quarter: 2023Q1

REPORT INFORMATION
  Report Type: Spontaneous
  Country: CN (occurrence: CN)
  Receive Date: 20230302
  Receipt Date: 20230302
  Transmission Date: 20230417
  Serious: Yes (Other)
  Sender: FDA-Public Use
  Company Number: CN-009507513-2302CHN008133

PATIENT
  Age: 72 Year
  Sex: Male
  Weight: 60 kg

DRUGS (3)
  1. CILASTATIN SODIUM\IMIPENEM [Suspect]
     Active Substance: CILASTATIN SODIUM\IMIPENEM
     Indication: Anti-infective therapy
     Dosage: 4.5 G (ALSO REPORTED AS 0.5 G), EVERY 8 HOURS (Q8H)
     Route: 041
     Dates: start: 20221214, end: 20221222
  2. CEFOPERAZONE SODIUM\SULBACTAM SODIUM [Suspect]
     Active Substance: CEFOPERAZONE SODIUM\SULBACTAM SODIUM
     Indication: Anti-infective therapy
     Dosage: 2 G, EVERY 12 HOURS (Q12H)
     Route: 041
     Dates: start: 20221212, end: 20221214
  3. VORICONAZOLE [Suspect]
     Active Substance: VORICONAZOLE
     Indication: Antifungal treatment
     Dosage: 200 MG, TWICE DAILY (BID)
     Route: 048
     Dates: start: 20221223, end: 20221228

REACTIONS (3)
  - Drug-induced liver injury [Recovering/Resolving]
  - Fungal infection [Unknown]
  - Overdose [Unknown]

NARRATIVE: CASE EVENT DATE: 20221214
